FAERS Safety Report 4836227-4 (Version None)
Quarter: 2005Q4

REPORT INFORMATION
  Report Type: 
  Country: None (occurrence: None)
  Receive Date: 20051123
  Receipt Date: 20051115
  Transmission Date: 20060501
  Serious: Yes (Other)
  Sender: FDA-Public Use
  Company Number: US-JNJFOC-20051103551

PATIENT
  Sex: Male

DRUGS (3)
  1. VIADUR [Suspect]
     Route: 058
  2. VIADUR [Suspect]
     Route: 058
  3. VIADUR [Suspect]
     Indication: PROSTATE CANCER
     Route: 058

REACTIONS (5)
  - BONE PAIN [None]
  - DEPRESSION [None]
  - HOT FLUSH [None]
  - LOWER LIMB FRACTURE [None]
  - MYALGIA [None]
